FAERS Safety Report 6881853-4 (Version None)
Quarter: 2010Q3

REPORT INFORMATION
  Report Type: 
  Country: None (occurrence: None)
  Receive Date: 20100729
  Receipt Date: 20100714
  Transmission Date: 20110219
  Serious: Yes (Hospitalization)
  Sender: FDA-Public Use
  Company Number: US-BAYER-201021944NA

PATIENT
  Age: 21 Year
  Sex: Female
  Weight: 73 kg

DRUGS (9)
  1. YAZ [Suspect]
     Indication: PRODUCT USED FOR UNKNOWN INDICATION
     Route: 048
     Dates: start: 20060101, end: 20100101
  2. YASMIN [Suspect]
     Indication: PRODUCT USED FOR UNKNOWN INDICATION
     Route: 048
     Dates: start: 20060101, end: 20100101
  3. DROSPIRENONE AND EHTINYL ESTRADIOL [Suspect]
     Indication: PRODUCT USED FOR UNKNOWN INDICATION
     Route: 048
     Dates: start: 20060101, end: 20100101
  4. MIGRAINE MEDICATIONS [Concomitant]
     Dates: start: 20060101
  5. ACETAMINOPHEN [Concomitant]
     Dates: start: 20000101, end: 20100101
  6. ADVIL LIQUI-GELS [Concomitant]
     Dates: start: 20000101, end: 20100101
  7. IBUPROFEN TABLETS [Concomitant]
     Dates: start: 20000101, end: 20100101
  8. MULTIPLE ANTIBIOTICS [Concomitant]
     Dates: start: 20000101, end: 20100101
  9. ASCORBIC ACID [Concomitant]
     Dates: start: 20070101, end: 20090101

REACTIONS (2)
  - ABDOMINAL PAIN [None]
  - CHOLELITHIASIS [None]
